FAERS Safety Report 4876298-2 (Version None)
Quarter: 2005Q4

REPORT INFORMATION
  Report Type: 
  Country: None (occurrence: None)
  Receive Date: 20051206
  Receipt Date: 20050816
  Transmission Date: 20060501
  Serious: No
  Sender: FDA-Public Use
  Company Number: USA0508104743

PATIENT
  Sex: Female

DRUGS (14)
  1. CYMBALTA [Suspect]
     Indication: DEPRESSION
     Dosage: 60 MG
     Dates: start: 20050701
  2. LEXAPRO [Concomitant]
  3. CONCERTA [Concomitant]
  4. FLONASE [Concomitant]
  5. NASONEX [Concomitant]
  6. TYLENOL (CAPLET) [Concomitant]
  7. LORATADINE [Concomitant]
  8. PREVACID [Concomitant]
  9. AMBIEN [Concomitant]
  10. VALIUM [Concomitant]
  11. ATENOLOL [Concomitant]
  12. FLEXERIL [Concomitant]
  13. DICLOFENAC [Concomitant]
  14. NEURONTIN [Concomitant]

REACTIONS (4)
  - ALTERED VISUAL DEPTH PERCEPTION [None]
  - ANORGASMIA [None]
  - MYDRIASIS [None]
  - VISUAL ACUITY REDUCED [None]
